FAERS Safety Report 16409893 (Version 1)
Quarter: 2019Q2

REPORT INFORMATION
  Report Type: Spontaneous
  Country: US (occurrence: US)
  Receive Date: 20190502
  Receipt Date: 20190502
  Transmission Date: 20190711
  Serious: Yes (Other)
  Sender: FDA-Public Use
  Company Number: None

PATIENT
  Age: 76 Year
  Sex: Female
  Weight: 48.99 kg

DRUGS (8)
  1. ONE A DAY MULTI VITAMIN [Concomitant]
  2. CITRACAL CALCIUM CITRATE [Concomitant]
  3. PROLIA [Suspect]
     Active Substance: DENOSUMAB
     Indication: OSTEOPOROSIS
     Dosage: ?          QUANTITY:60 MG MILLIGRAM(S);OTHER FREQUENCY:EVERY 6 MONTHS;?
     Route: 058
     Dates: start: 201608, end: 20181004
  4. RESTASSIS [Concomitant]
  5. PREMARIN CREAM [Concomitant]
  6. RENEW LIFE PROBIOTIC [Concomitant]
  7. RANITIDINE. [Concomitant]
     Active Substance: RANITIDINE
  8. CYMBALTA [Concomitant]
     Active Substance: DULOXETINE HYDROCHLORIDE

REACTIONS (3)
  - Infection [None]
  - Tooth dislocation [None]
  - Impaired healing [None]

NARRATIVE: CASE EVENT DATE: 20180728
